FAERS Safety Report 10788190 (Version 3)
Quarter: 2020Q4

REPORT INFORMATION
  Report Type: Other
  Country: US (occurrence: US)
  Receive Date: 20150212
  Receipt Date: 20201125
  Transmission Date: 20210113
  Serious: Yes (Other)
  Sender: FDA-Public Use
  Company Number: US-ROCHE-1535651

PATIENT

DRUGS (14)
  1. VORINOSTAT [Suspect]
     Active Substance: VORINOSTAT
     Indication: B-CELL LYMPHOMA
     Dosage: STARTING DOSE WAS 300 MG ON DAYS 1-5 ON EACH OF SIX 21-DAY CYCLES AND ESCALATED TO A MAXIMUM OF 400
     Route: 048
  2. VINCRISTINE [Suspect]
     Active Substance: VINCRISTINE
     Indication: B-CELL LYMPHOMA
     Dosage: OVER 24 HOURS ON DAYS 1-4
     Route: 042
  3. CYCLOPHOSPHAMIDE. [Suspect]
     Active Substance: CYCLOPHOSPHAMIDE
     Indication: B-CELL LYMPHOMA
     Dosage: OVER 1 HOUR ON DAY 1
     Route: 042
  4. DOXORUBICIN [Suspect]
     Active Substance: DOXORUBICIN
     Indication: HIV INFECTION
  5. RITUXIMAB. [Suspect]
     Active Substance: RITUXIMAB
     Indication: B-CELL LYMPHOMA
     Dosage: ON DAY 1
     Route: 042
  6. RITUXIMAB. [Suspect]
     Active Substance: RITUXIMAB
     Indication: HIV INFECTION
  7. PREDNISONE. [Suspect]
     Active Substance: PREDNISONE
     Indication: B-CELL LYMPHOMA
     Dosage: ON DAYS 1-5
     Route: 048
  8. VORINOSTAT [Suspect]
     Active Substance: VORINOSTAT
     Indication: HIV INFECTION
  9. CYCLOPHOSPHAMIDE. [Suspect]
     Active Substance: CYCLOPHOSPHAMIDE
     Indication: HIV INFECTION
  10. DOXORUBICIN [Suspect]
     Active Substance: DOXORUBICIN
     Indication: B-CELL LYMPHOMA
     Dosage: OVER 24 HOURS
     Route: 042
  11. ETOPOSIDE. [Suspect]
     Active Substance: ETOPOSIDE
     Indication: B-CELL LYMPHOMA
     Dosage: OVER 24 HOURS
     Route: 042
  12. ETOPOSIDE. [Suspect]
     Active Substance: ETOPOSIDE
     Indication: HIV INFECTION
  13. PREDNISONE. [Suspect]
     Active Substance: PREDNISONE
     Indication: HIV INFECTION
  14. VINCRISTINE [Suspect]
     Active Substance: VINCRISTINE
     Indication: HIV INFECTION

REACTIONS (31)
  - Anaemia [Unknown]
  - Left ventricular dysfunction [Unknown]
  - Diarrhoea [Unknown]
  - Mental disorder [Unknown]
  - Neutropenia [Unknown]
  - Dehydration [Unknown]
  - Hyperbilirubinaemia [Unknown]
  - Alanine aminotransferase increased [Unknown]
  - Thrombocytopenia [Unknown]
  - Tooth infection [Unknown]
  - Embolism [Unknown]
  - Atrial fibrillation [Unknown]
  - Systolic dysfunction [Unknown]
  - Vomiting [Unknown]
  - Febrile neutropenia [Unknown]
  - Fatigue [Unknown]
  - Sepsis [Unknown]
  - Abdominal pain [Unknown]
  - Nausea [Unknown]
  - Pyrexia [Unknown]
  - Aspartate aminotransferase increased [Unknown]
  - Blood alkaline phosphatase increased [Unknown]
  - Tumour haemorrhage [Unknown]
  - Gastric haemorrhage [Unknown]
  - Lymphopenia [Unknown]
  - Respiratory failure [Unknown]
  - Sinus arrhythmia [Unknown]
  - Gastrointestinal obstruction [Unknown]
  - Haemorrhage [Unknown]
  - Peripheral sensory neuropathy [Unknown]
  - Paraesthesia [Unknown]
